FAERS Safety Report 6543439-0 (Version None)
Quarter: 2010Q1

REPORT INFORMATION
  Report Type: 
  Country: None (occurrence: None)
  Receive Date: 20100120
  Receipt Date: 20100111
  Transmission Date: 20100710
  Serious: Yes (Hospitalization)
  Sender: FDA-Public Use
  Company Number: A0839498A

PATIENT
  Sex: Male
  Weight: 59 kg

DRUGS (3)
  1. LAPATINIB [Suspect]
     Dosage: 1500MG PER DAY
     Route: 048
     Dates: start: 20090728
  2. CISPLATIN [Suspect]
     Dosage: 100MGM2 CYCLIC
     Route: 042
     Dates: start: 20090804
  3. RADIOTHERAPY [Suspect]
     Dosage: 8GY VARIABLE DOSE
     Route: 061
     Dates: start: 20090804

REACTIONS (4)
  - ASTHENIA [None]
  - DIZZINESS [None]
  - DYSPHAGIA [None]
  - VOMITING [None]
